FAERS Safety Report 24712346 (Version 4)
Quarter: 2024Q4

REPORT INFORMATION
  Report Type: Spontaneous
  Country: US (occurrence: US)
  Receive Date: 20241209
  Receipt Date: 20241211
  Transmission Date: 20250115
  Serious: Yes (Other)
  Sender: ROCHE
  Company Number: US-ROCHE-10000151563

PATIENT
  Age: 19 Month
  Sex: Female

DRUGS (1)
  1. EVRYSDI [Suspect]
     Active Substance: RISDIPLAM
     Indication: Spinal muscular atrophy
     Route: 065

REACTIONS (5)
  - Lower limb fracture [Unknown]
  - Hip fracture [Unknown]
  - Respiratory tract infection [Unknown]
  - Pneumonia [Unknown]
  - Rhinovirus infection [Unknown]
